FAERS Safety Report 6060812-8 (Version None)
Quarter: 2009Q1

REPORT INFORMATION
  Report Type: 
  Country: None (occurrence: None)
  Receive Date: 20090202
  Receipt Date: 20090126
  Transmission Date: 20090719
  Serious: Yes (Death)
  Sender: FDA-Public Use
  Company Number: PHBS2009ES00627

PATIENT
  Age: 50 Year
  Sex: Female

DRUGS (6)
  1. GLEEVEC [Suspect]
     Indication: PULMONARY ARTERIAL HYPERTENSION
     Dosage: 200 MG/D.
  2. EPOPROSTENOL [Concomitant]
     Indication: PULMONARY ARTERIAL HYPERTENSION
     Dosage: MAX DOSE 42NG/KG/MIN
     Dates: end: 20070101
  3. DIURETICS [Concomitant]
     Indication: PULMONARY ARTERIAL HYPERTENSION
  4. BOSENTAN [Concomitant]
     Indication: PULMONARY ARTERIAL HYPERTENSION
     Dosage: 500 MG/D
  5. BOSENTAN [Concomitant]
     Dosage: 125 MG/D
  6. PROPYL-THIOURACIL [Concomitant]
     Indication: PULMONARY ARTERIAL HYPERTENSION

REACTIONS (13)
  - ALANINE AMINOTRANSFERASE INCREASED [None]
  - BILIRUBIN CONJUGATED INCREASED [None]
  - BLOOD ALKALINE PHOSPHATASE INCREASED [None]
  - BLOOD BILIRUBIN INCREASED [None]
  - DILATATION VENTRICULAR [None]
  - GAMMA-GLUTAMYLTRANSFERASE ABNORMAL [None]
  - HEPATIC NECROSIS [None]
  - HEPATOTOXICITY [None]
  - JAUNDICE [None]
  - LUNG DISORDER [None]
  - MALAISE [None]
  - RIGHT VENTRICULAR HYPERTROPHY [None]
  - TRANSAMINASES INCREASED [None]
